FAERS Safety Report 18911091 (Version 2)
Quarter: 2021Q2

REPORT INFORMATION
  Report Type: Spontaneous
  Country: US (occurrence: US)
  Receive Date: 20210218
  Receipt Date: 20210407
  Transmission Date: 20210717
  Serious: No
  Sender: FDA-Public Use
  Company Number: US-PFIZER INC-2021142554

PATIENT
  Sex: Female

DRUGS (1)
  1. FELDENE [Suspect]
     Active Substance: PIROXICAM
     Indication: ARTHRITIS
     Dosage: UNK
     Route: 048

REACTIONS (3)
  - Off label use [Unknown]
  - Memory impairment [Unknown]
  - Headache [Unknown]
